FAERS Safety Report 8276757-9 (Version None)
Quarter: 2012Q2

REPORT INFORMATION
  Report Type: 
  Country: None (occurrence: None)
  Receive Date: 20120405
  Receipt Date: 20120328
  Transmission Date: 20120825
  Serious: Yes (Other)
  Sender: FDA-Public Use
  Company Number: 2012SP008913

PATIENT
  Age: 49 Year
  Sex: Female
  Weight: 49 kg

DRUGS (2)
  1. NEXPLANON [Suspect]
     Indication: PRODUCT USED FOR UNKNOWN INDICATION
     Dosage: 1 DF
     Dates: end: 20120203
  2. NEXPLANON [Suspect]
     Indication: PRODUCT USED FOR UNKNOWN INDICATION
     Dosage: 1 DF
     Dates: start: 20120203, end: 20120229

REACTIONS (6)
  - PERIPHERAL NERVE PALSY [None]
  - DEVICE DIFFICULT TO USE [None]
  - IMPLANT SITE HAEMATOMA [None]
  - PARAESTHESIA [None]
  - HAEMATOMA [None]
  - PROCEDURAL PAIN [None]
